FAERS Safety Report 4784017-3 (Version None)
Quarter: 2005Q3

REPORT INFORMATION
  Report Type: 
  Country: None (occurrence: None)
  Receive Date: 20050927
  Receipt Date: 20050601
  Transmission Date: 20060218
  Serious: No
  Sender: FDA-Public Use
  Company Number: USA041285925

PATIENT
  Age: 8 Year
  Sex: Male
  Weight: 28 kg

DRUGS (2)
  1. STRATTERA [Suspect]
     Indication: ATTENTION DEFICIT/HYPERACTIVITY DISORDER
     Dosage: 36 MG DAY
     Dates: start: 20041101
  2. ALLEGRA [Concomitant]

REACTIONS (11)
  - ANOREXIA [None]
  - CRYING [None]
  - DISTRACTIBILITY [None]
  - DISTURBANCE IN ATTENTION [None]
  - DRUG EFFECT DECREASED [None]
  - EDUCATIONAL PROBLEM [None]
  - FATIGUE [None]
  - FEELING JITTERY [None]
  - NASOPHARYNGITIS [None]
  - NERVOUSNESS [None]
  - SOMNOLENCE [None]
